FAERS Safety Report 8110979-2 (Version None)
Quarter: 2012Q1

REPORT INFORMATION
  Report Type: 
  Country: None (occurrence: None)
  Receive Date: 20120203
  Receipt Date: 20110124
  Transmission Date: 20120608
  Serious: No
  Sender: FDA-Public Use
  Company Number: US-GLAXOSMITHKLINE-A0908609A

PATIENT
  Age: 39 Year
  Sex: Female

DRUGS (4)
  1. ATIVAN [Concomitant]
  2. XANAX [Concomitant]
  3. AMBIEN [Concomitant]
  4. LAMOTRIGINE [Suspect]
     Indication: BIPOLAR DISORDER
     Dosage: 150MG PER DAY
     Route: 048
     Dates: start: 20100601

REACTIONS (3)
  - DRUG EFFECT DECREASED [None]
  - RASH [None]
  - RESTLESSNESS [None]
